FAERS Safety Report 4383628-7 (Version None)
Quarter: 2004Q2

REPORT INFORMATION
  Report Type: 
  Country: None (occurrence: None)
  Receive Date: 20040623
  Receipt Date: 20040615
  Transmission Date: 20050107
  Serious: Yes (Other)
  Sender: FDA-Public Use
  Company Number: PHBS2004JP07808

PATIENT
  Age: 68 Year
  Sex: Male

DRUGS (6)
  1. STARSIS #AJ [Suspect]
     Indication: DIABETES MELLITUS
     Dosage: 270 MG/DAY
     Route: 048
     Dates: start: 20030910, end: 20040608
  2. PANALDINE [Concomitant]
     Dosage: 100 MG, UNK
  3. BUFORMIN HYDROCHLORIDE [Concomitant]
     Dosage: 150 MG, UNK
  4. LASIX [Concomitant]
     Dosage: 20 MG, UNK
  5. ALDACTONE-A [Concomitant]
     Dosage: 25 MG, UNK
  6. WARFARIN SODIUM [Concomitant]
     Dosage: 4 MG, UNK

REACTIONS (2)
  - NEUTROPHIL COUNT DECREASED [None]
  - WHITE BLOOD CELL COUNT DECREASED [None]
